FAERS Safety Report 8000370-1 (Version None)
Quarter: 2011Q4

REPORT INFORMATION
  Report Type: 
  Country: None (occurrence: None)
  Receive Date: 20111222
  Receipt Date: 20111213
  Transmission Date: 20120403
  Serious: Yes (Hospitalization)
  Sender: FDA-Public Use
  Company Number: US-BAYER-2011-040450

PATIENT
  Age: 24 Year
  Sex: Female
  Weight: 79 kg

DRUGS (4)
  1. YAZ [Suspect]
     Indication: PREMENSTRUAL SYNDROME
     Dosage: UNK
     Dates: start: 20071001, end: 20080901
  2. WELLBUTRIN [Concomitant]
     Dosage: UNK
     Dates: start: 20070101, end: 20090101
  3. YAZ [Suspect]
     Indication: OVARIAN CYST
  4. ANTACIDS [Concomitant]

REACTIONS (6)
  - BILE DUCT STONE [None]
  - CHOLELITHIASIS [None]
  - CHOLECYSTITIS CHRONIC [None]
  - PAIN [None]
  - DEHYDRATION [None]
  - URINARY TRACT INFECTION [None]
